FAERS Safety Report 18722395 (Version 1)
Quarter: 2021Q1

REPORT INFORMATION
  Report Type: Spontaneous
  Country: US (occurrence: US)
  Receive Date: 20210111
  Receipt Date: 20210111
  Transmission Date: 20210419
  Serious: Yes (Other)
  Sender: FDA-Public Use
  Company Number: US-AUROBINDO-AUR-APL-2021-000899

PATIENT
  Age: 63 Year
  Sex: Male

DRUGS (1)
  1. LEVOFLOXACIN. [Suspect]
     Active Substance: LEVOFLOXACIN
     Indication: UPPER RESPIRATORY TRACT INFECTION
     Dosage: 750 MILLIGRAM, ONCE A DAY
     Route: 065

REACTIONS (2)
  - Chorea [Recovered/Resolved]
  - Neurotoxicity [Recovered/Resolved]
